FAERS Safety Report 5967488-6 (Version None)
Quarter: 2008Q4

REPORT INFORMATION
  Report Type: 
  Country: None (occurrence: None)
  Receive Date: 20081125
  Receipt Date: 20081117
  Transmission Date: 20090506
  Serious: Yes (Other)
  Sender: FDA-Public Use
  Company Number: FR-PFIZER INC-2008030133

PATIENT
  Sex: Female
  Weight: 59 kg

DRUGS (7)
  1. MARAVIROC [Suspect]
     Indication: HIV TEST POSITIVE
     Route: 048
     Dates: start: 20071206, end: 20080324
  2. CITALOPRAM HYDROBROMIDE [Concomitant]
     Route: 048
     Dates: start: 20070510
  3. ATOVAQUONE [Concomitant]
     Route: 048
     Dates: start: 20051129
  4. AZITHROMYCIN [Concomitant]
     Route: 048
     Dates: start: 20070709
  5. PROMEGESTONE [Concomitant]
     Route: 048
     Dates: start: 20070724
  6. CLONAZEPAM [Concomitant]
     Route: 048
     Dates: start: 20080221
  7. DI-ANTALVIC [Concomitant]
     Route: 048
     Dates: start: 20080107

REACTIONS (2)
  - ORTHOSTATIC HYPOTENSION [None]
  - VERTIGO [None]
